FAERS Safety Report 17282382 (Version 1)
Quarter: 2020Q1

REPORT INFORMATION
  Report Type: Spontaneous
  Country: US (occurrence: US)
  Receive Date: 20191227
  Receipt Date: 20191227
  Transmission Date: 20200409
  Serious: No
  Sender: FDA-Public Use
  Company Number: None

PATIENT
  Age: 72 Year
  Sex: Female
  Weight: 99.34 kg

DRUGS (15)
  1. NITROGLYCERIN. [Concomitant]
     Active Substance: NITROGLYCERIN
  2. POTASSIUM [Concomitant]
     Active Substance: POTASSIUM
  3. FIBER (GUMMIES) [Concomitant]
  4. LISINOPRIL. [Concomitant]
     Active Substance: LISINOPRIL
  5. CARVEDILOL. [Concomitant]
     Active Substance: CARVEDILOL
  6. ATORVASTATIN [Concomitant]
     Active Substance: ATORVASTATIN
  7. POTASSIUM [Concomitant]
     Active Substance: POTASSIUM
  8. CLOPIDOGREL [Concomitant]
     Active Substance: CLOPIDOGREL BISULFATE
  9. REPATHA [Suspect]
     Active Substance: EVOLOCUMAB
     Indication: LOW DENSITY LIPOPROTEIN INCREASED
     Dosage: ?          QUANTITY:1 ;OTHER FREQUENCY:EVERY 2 WEEKS;?
     Dates: start: 20190512, end: 20191012
  10. FUROSEMIDE. [Concomitant]
     Active Substance: FUROSEMIDE
  11. CARVEDILOL. [Concomitant]
     Active Substance: CARVEDILOL
  12. FUROSEMIDE. [Concomitant]
     Active Substance: FUROSEMIDE
  13. ATORVASTATIN [Concomitant]
     Active Substance: ATORVASTATIN
  14. CHOLECALCIFEROL [Concomitant]
     Active Substance: CHOLECALCIFEROL
  15. ASPIRIN. [Concomitant]
     Active Substance: ASPIRIN

REACTIONS (10)
  - Injection site bruising [None]
  - Abdominal discomfort [None]
  - Injection site pruritus [None]
  - Muscle spasms [None]
  - Back pain [None]
  - Vomiting [None]
  - Injection site pain [None]
  - Photophobia [None]
  - Headache [None]
  - Skin odour abnormal [None]

NARRATIVE: CASE EVENT DATE: 20190712
